FAERS Safety Report 8411405-6 (Version None)
Quarter: 2012Q2

REPORT INFORMATION
  Report Type: 
  Country: None (occurrence: None)
  Receive Date: 20120531
  Receipt Date: 20120531
  Transmission Date: 20120825
  Serious: Yes (Life-Threatening)
  Sender: FDA-Public Use
  Company Number: None

PATIENT
  Sex: Male
  Weight: 83.9154 kg

DRUGS (1)
  1. AGRYLIN [Suspect]
     Indication: PLATELET COUNT INCREASED
     Dosage: 1.5 MG PER DAY 3 MG (1.5 INCREAS PER DAY
     Dates: start: 20120517

REACTIONS (7)
  - PARANOIA [None]
  - HANGOVER [None]
  - HEADACHE [None]
  - OVERDOSE [None]
  - DEPRESSION [None]
  - CHEST PAIN [None]
  - PAIN [None]
